FAERS Safety Report 14761635 (Version 1)
Quarter: 2018Q2

REPORT INFORMATION
  Report Type: Report from Study
  Country: None (occurrence: RO)
  Receive Date: 20180416
  Receipt Date: 20180416
  Transmission Date: 20180711
  Serious: Yes (Hospitalization)
  Sender: FDA-Public Use
  Company Number: RO-ABBVIE-18K-135-2320701-00

PATIENT
  Sex: Female

DRUGS (5)
  1. METHOTREXATE. [Concomitant]
     Active Substance: METHOTREXATE
     Indication: RHEUMATOID ARTHRITIS
     Dates: start: 2013, end: 2017
  2. SULPHASALAZINE [Concomitant]
     Active Substance: SULFASALAZINE
     Indication: RHEUMATOID ARTHRITIS
     Route: 048
     Dates: start: 2014, end: 201705
  3. SULPHASALAZINE [Concomitant]
     Active Substance: SULFASALAZINE
     Dates: start: 201705
  4. ZINNAT [Concomitant]
     Active Substance: CEFUROXIME AXETIL
     Indication: POSTOPERATIVE CARE
     Route: 048
     Dates: start: 20180407, end: 20180410
  5. HUMIRA [Suspect]
     Active Substance: ADALIMUMAB
     Indication: RHEUMATOID ARTHRITIS
     Route: 058
     Dates: start: 20150115

REACTIONS (6)
  - Headache [Recovered/Resolved]
  - Syncope [Recovered/Resolved]
  - Foot deformity [Unknown]
  - Pallor [Recovered/Resolved]
  - Vomiting [Recovered/Resolved]
  - Nausea [Recovered/Resolved]

NARRATIVE: CASE EVENT DATE: 2016
